FAERS Safety Report 15426301 (Version 1)
Quarter: 2018Q3

REPORT INFORMATION
  Report Type: Spontaneous
  Country: US (occurrence: US)
  Receive Date: 20180925
  Receipt Date: 20180925
  Transmission Date: 20181010
  Serious: Yes (Death, Other)
  Sender: FDA-Public Use
  Company Number: US-INDIVIOR LIMITED-INDV-103976-2017

PATIENT
  Age: 36 Year
  Sex: Male

DRUGS (16)
  1. BUPRENORPHINE. [Suspect]
     Active Substance: BUPRENORPHINE
     Dosage: 4ML, UNK
     Route: 060
     Dates: start: 20140421, end: 2014
  2. BUPRENORPHINE. [Suspect]
     Active Substance: BUPRENORPHINE
     Dosage: 10ML, UNK
     Route: 060
     Dates: start: 20140527, end: 2014
  3. BUPRENORPHINE. [Suspect]
     Active Substance: BUPRENORPHINE
     Dosage: 6ML, UNK
     Route: 060
     Dates: start: 20140717
  4. NALOXONE [Suspect]
     Active Substance: NALOXONE
     Indication: PRODUCT USED FOR UNKNOWN INDICATION
     Dosage: 4ML IN 4 SYRINGES
     Route: 060
     Dates: start: 20140320
  5. NALOXONE [Suspect]
     Active Substance: NALOXONE
     Dosage: 4ML, UNK
     Route: 060
     Dates: start: 20140421
  6. BUPRENORPHINE. [Suspect]
     Active Substance: BUPRENORPHINE
     Dosage: 10ML, UNK
     Route: 060
     Dates: start: 20140609, end: 2014
  7. BUPRENORPHINE. [Suspect]
     Active Substance: BUPRENORPHINE
     Indication: PRODUCT USED FOR UNKNOWN INDICATION
     Dosage: 4ML IN 4 SYRINGES
     Route: 060
     Dates: start: 20140320
  8. BUPRENORPHINE. [Suspect]
     Active Substance: BUPRENORPHINE
     Dosage: UNK
     Route: 060
     Dates: start: 20140325
  9. NALOXONE [Suspect]
     Active Substance: NALOXONE
     Dosage: 1ML, UNK
     Route: 060
     Dates: start: 20140716
  10. BUPRENORPHINE. [Suspect]
     Active Substance: BUPRENORPHINE
     Dosage: 1ML, UNK
     Route: 060
     Dates: start: 20140716
  11. NALOXONE [Suspect]
     Active Substance: NALOXONE
     Dosage: 6ML, UNK
     Route: 060
     Dates: start: 20140717
  12. VALIUM [Suspect]
     Active Substance: DIAZEPAM
     Indication: PRODUCT USED FOR UNKNOWN INDICATION
     Dosage: UNK
     Route: 065
  13. NALOXONE [Suspect]
     Active Substance: NALOXONE
     Dosage: UNK
     Route: 060
     Dates: start: 20140325
  14. NALOXONE [Suspect]
     Active Substance: NALOXONE
     Dosage: 10ML, UNK
     Route: 060
     Dates: start: 20140527
  15. NALOXONE [Suspect]
     Active Substance: NALOXONE
     Dosage: 10ML, UNK
     Route: 060
     Dates: start: 20140609
  16. HEROIN [Suspect]
     Active Substance: DIAMORPHINE
     Indication: PRODUCT USED FOR UNKNOWN INDICATION
     Dosage: UNK
     Route: 051
     Dates: end: 20140805

REACTIONS (5)
  - Toxicity to various agents [Fatal]
  - Road traffic accident [Recovered/Resolved]
  - Drug abuse [Unknown]
  - Product preparation error [Recovered/Resolved]
  - Overdose [Fatal]

NARRATIVE: CASE EVENT DATE: 2014
